FAERS Safety Report 5292162-1 (Version None)
Quarter: 2007Q2

REPORT INFORMATION
  Report Type: 
  Country: None (occurrence: None)
  Receive Date: 20070410
  Receipt Date: 20070402
  Transmission Date: 20071010
  Serious: Yes (Other)
  Sender: FDA-Public Use
  Company Number: BR-AVENTIS-200713026GDDC

PATIENT
  Sex: Female
  Weight: 74 kg

DRUGS (2)
  1. LANTUS [Suspect]
     Indication: DIABETES MELLITUS INSULIN-DEPENDENT
     Route: 058
  2. MICARDIS HCT [Concomitant]
     Indication: HYPERTENSION
     Route: 048

REACTIONS (2)
  - BLINDNESS [None]
  - CONDITION AGGRAVATED [None]
